FAERS Safety Report 6436903-6 (Version None)
Quarter: 2009Q4

REPORT INFORMATION
  Report Type: 
  Country: None (occurrence: None)
  Receive Date: 20091109
  Receipt Date: 20091104
  Transmission Date: 20100525
  Serious: Yes (Other)
  Sender: FDA-Public Use
  Company Number: 2009012081

PATIENT
  Sex: Male

DRUGS (1)
  1. TREANDA [Suspect]
     Dosage: (CYCLICAL), INTRAVENOUS
     Route: 042

REACTIONS (2)
  - HAEMOLYTIC ANAEMIA [None]
  - MYOCARDIAL INFARCTION [None]
